FAERS Safety Report 13564452 (Version 2)
Quarter: 2017Q2

REPORT INFORMATION
  Report Type: Spontaneous
  Country: JP (occurrence: JP)
  Receive Date: 20170519
  Receipt Date: 20170602
  Transmission Date: 20170830
  Serious: Yes (Other)
  Sender: FDA-Public Use
  Company Number: JP-009507513-1705JPN001241J

PATIENT
  Age: 74 Year
  Sex: Male

DRUGS (6)
  1. KEYTRUDA [Suspect]
     Active Substance: PEMBROLIZUMAB
     Indication: NON-SMALL CELL LUNG CANCER
     Dosage: 200 MG, Q3W
     Route: 041
     Dates: start: 20170418, end: 2017
  2. LANSOPRAZOLE. [Concomitant]
     Active Substance: LANSOPRAZOLE
     Dosage: 15 MG, QD
     Route: 048
  3. BISOPROLOL FUMARATE. [Concomitant]
     Active Substance: BISOPROLOL FUMARATE
     Dosage: 2.5 MG, UNK
     Route: 048
  4. ALLOPURINOL. [Concomitant]
     Active Substance: ALLOPURINOL
     Dosage: 100 MG, QD
     Route: 048
  5. ATORVASTATIN [Concomitant]
     Active Substance: ATORVASTATIN
     Dosage: 10 MG, QD
     Route: 048
  6. NICORANDIL [Concomitant]
     Active Substance: NICORANDIL
     Dosage: 5 MG, TID
     Route: 048

REACTIONS (1)
  - Embolic stroke [Recovered/Resolved]

NARRATIVE: CASE EVENT DATE: 20170426
